FAERS Safety Report 9981009 (Version 2)
Quarter: 2014Q1

REPORT INFORMATION
  Report Type: Other
  Country: GB (occurrence: GB)
  Receive Date: 20140307
  Receipt Date: 20140325
  Transmission Date: 20141002
  Serious: Yes (Hospitalization)
  Sender: FDA-Public Use
  Company Number: GB-SUN PHARMACEUTICAL INDUSTRIES LTD-2014SUN00492

PATIENT
  Age: 70 Year
  Sex: Female

DRUGS (3)
  1. CARBOPLATIN 10 MG/ML CONCENTRATE FOR SOLUTION FOR INFUSION [Suspect]
     Indication: OVARIAN CANCER
     Dosage: UNK
     Route: 042
     Dates: start: 20130925, end: 20131106
  2. AVASTIN [Suspect]
     Indication: OVARIAN CANCER
     Dosage: 15 MG/KG, ONCE A THREE WEEK
     Route: 042
     Dates: start: 20131016, end: 20131016
  3. ABRAXANE [Suspect]
     Indication: OVARIAN CANCER
     Dosage: 175 MG/M2, ONCE A THREE WEEK
     Route: 042
     Dates: start: 20130925, end: 20131106

REACTIONS (2)
  - Colonic abscess [Not Recovered/Not Resolved]
  - Intestinal perforation [Not Recovered/Not Resolved]
